FAERS Safety Report 10990475 (Version 44)
Quarter: 2021Q3

REPORT INFORMATION
  Report Type: Other
  Country: CA (occurrence: CA)
  Receive Date: 20150406
  Receipt Date: 20210927
  Transmission Date: 20211014
  Serious: Yes (Other)
  Sender: FDA-Public Use
  Company Number: CA-ROCHE-1551832

PATIENT
  Age: 57 Year
  Sex: Male
  Weight: 81 kg

DRUGS (21)
  1. ACTEMRA [Suspect]
     Active Substance: TOCILIZUMAB
     Route: 042
     Dates: start: 201506, end: 2015
  2. SULFASALAZINE. [Concomitant]
     Active Substance: SULFASALAZINE
     Dates: start: 201402
  3. HYDROXYCHLOROQUINE [Concomitant]
     Active Substance: HYDROXYCHLOROQUINE
  4. ACTEMRA [Suspect]
     Active Substance: TOCILIZUMAB
     Indication: RHEUMATOID ARTHRITIS
     Route: 042
     Dates: start: 20150312, end: 20150312
  5. ACTEMRA [Suspect]
     Active Substance: TOCILIZUMAB
     Route: 042
     Dates: start: 20150729, end: 20160128
  6. METHOTREXATE. [Concomitant]
     Active Substance: METHOTREXATE
     Dates: start: 201501
  7. CORTISONE [Concomitant]
     Active Substance: CORTISONE
     Route: 065
     Dates: start: 20160120
  8. PLAQUENIL [Concomitant]
     Active Substance: HYDROXYCHLOROQUINE SULFATE
  9. ACTEMRA [Suspect]
     Active Substance: TOCILIZUMAB
     Route: 042
     Dates: start: 20150630, end: 20150630
  10. RITUXAN [Suspect]
     Active Substance: RITUXIMAB
     Indication: PRODUCT USED FOR UNKNOWN INDICATION
     Route: 065
     Dates: start: 20190415, end: 20200203
  11. ACTEMRA [Suspect]
     Active Substance: TOCILIZUMAB
     Route: 042
     Dates: start: 20160201, end: 20180820
  12. ACTEMRA [Suspect]
     Active Substance: TOCILIZUMAB
     Route: 042
     Dates: start: 20150706, end: 2016
  13. FOLIC ACID. [Concomitant]
     Active Substance: FOLIC ACID
  14. ACTEMRA [Suspect]
     Active Substance: TOCILIZUMAB
     Route: 042
     Dates: start: 20150506, end: 20150506
  15. ACTEMRA [Suspect]
     Active Substance: TOCILIZUMAB
     Route: 042
     Dates: start: 20210203
  16. ELTROXIN [Concomitant]
     Active Substance: LEVOTHYROXINE
  17. CORTISONE [Concomitant]
     Active Substance: CORTISONE
     Route: 065
     Dates: start: 20151103
  18. ACTEMRA [Suspect]
     Active Substance: TOCILIZUMAB
     Route: 042
     Dates: start: 20160226
  19. CELEBREX [Concomitant]
     Active Substance: CELECOXIB
  20. DICLOFENAC [Concomitant]
     Active Substance: DICLOFENAC
  21. ACTEMRA [Suspect]
     Active Substance: TOCILIZUMAB
     Route: 042
     Dates: start: 20150603, end: 20150603

REACTIONS (41)
  - Weight increased [Not Recovered/Not Resolved]
  - Blood pressure diastolic abnormal [Unknown]
  - Rheumatoid arthritis [Recovered/Resolved]
  - Hypoaesthesia [Recovered/Resolved]
  - Pain [Recovered/Resolved]
  - Heart rate decreased [Unknown]
  - Infusion site bruising [Not Recovered/Not Resolved]
  - Dizziness [Recovered/Resolved]
  - Pyrexia [Recovered/Resolved]
  - Blood pressure diastolic decreased [Unknown]
  - Neoplasm malignant [Unknown]
  - Hepatitis B virus test positive [Unknown]
  - Oxygen saturation decreased [Unknown]
  - Pain [Not Recovered/Not Resolved]
  - Bladder neoplasm [Unknown]
  - Infusion related reaction [Recovering/Resolving]
  - Weight decreased [Unknown]
  - Swelling [Unknown]
  - Drug ineffective [Unknown]
  - Blood pressure fluctuation [Unknown]
  - Chromaturia [Recovering/Resolving]
  - Oxygen saturation decreased [Unknown]
  - Urinary bladder herniation [Unknown]
  - Hypotension [Unknown]
  - Injection site pain [Recovered/Resolved]
  - Arthralgia [Not Recovered/Not Resolved]
  - Musculoskeletal disorder [Unknown]
  - Pain in extremity [Not Recovered/Not Resolved]
  - Insomnia [Unknown]
  - Vomiting [Recovered/Resolved]
  - Heart rate decreased [Unknown]
  - Non-cardiac chest pain [Unknown]
  - Blood urine present [Unknown]
  - Heart rate decreased [Unknown]
  - Periarthritis [Unknown]
  - Oxygen saturation decreased [Unknown]
  - Weight fluctuation [Unknown]
  - Nasopharyngitis [Not Recovered/Not Resolved]
  - Arthralgia [Not Recovered/Not Resolved]
  - Body temperature decreased [Unknown]
  - Labyrinthitis [Recovered/Resolved]

NARRATIVE: CASE EVENT DATE: 20150312
